FAERS Safety Report 23556990 (Version 1)
Quarter: 2024Q1

REPORT INFORMATION
  Report Type: Spontaneous
  Country: GB (occurrence: GB)
  Receive Date: 20240223
  Receipt Date: 20240223
  Transmission Date: 20240409
  Serious: Yes (Other)
  Sender: FDA-Public Use
  Company Number: None

PATIENT

DRUGS (3)
  1. ATORVASTATIN [Suspect]
     Active Substance: ATORVASTATIN
     Indication: Familial risk factor
     Route: 065
     Dates: start: 2022, end: 202312
  2. CALCIUM [Concomitant]
     Active Substance: CALCIUM
     Indication: Adverse drug reaction
     Route: 065
  3. CALCIUM [Concomitant]
     Active Substance: CALCIUM

REACTIONS (10)
  - Brain fog [Unknown]
  - Immobile [Recovering/Resolving]
  - Pain [Unknown]
  - Headache [Unknown]
  - Arthralgia [Recovering/Resolving]
  - Muscular weakness [Recovering/Resolving]
  - Lethargy [Unknown]
  - Depression [Unknown]
  - Fatigue [Unknown]
  - Neck pain [Unknown]

NARRATIVE: CASE EVENT DATE: 20230901
